FAERS Safety Report 8510834-X (Version None)
Quarter: 2012Q3

REPORT INFORMATION
  Report Type: 
  Country: None (occurrence: None)
  Receive Date: 20120716
  Receipt Date: 20120702
  Transmission Date: 20120928
  Serious: Yes (Other)
  Sender: FDA-Public Use
  Company Number: CZ-RANBAXY-2012RR-57700

PATIENT
  Age: 47 Year
  Sex: Male

DRUGS (1)
  1. SERTRALINE HYDROCHLORIDE [Suspect]
     Indication: DEPRESSION
     Dosage: 50 MG/DAY
     Route: 065

REACTIONS (3)
  - MOVEMENT DISORDER [None]
  - SOMNOLENCE [None]
  - SLEEP DISORDER [None]
